FAERS Safety Report 7938137-2 (Version None)
Quarter: 2011Q4

REPORT INFORMATION
  Report Type: 
  Country: None (occurrence: None)
  Receive Date: 20111123
  Receipt Date: 20110729
  Transmission Date: 20120403
  Serious: No
  Sender: FDA-Public Use
  Company Number: US-BRISTOL-MYERS SQUIBB COMPANY-15936404

PATIENT
  Age: 81 Year
  Sex: Male
  Weight: 91 kg

DRUGS (8)
  1. METFORMIN HCL [Suspect]
     Indication: DIABETES MELLITUS
  2. LANTUS [Suspect]
     Indication: DIABETES MELLITUS
     Dosage: 1 DF:20 TO 25 UNITS GIVEN
  3. METOPROLOL TARTRATE [Concomitant]
     Indication: HYPERTENSION
  4. POTASSIUM [Concomitant]
     Indication: HYPERTENSION
     Dosage: TABLETS
  5. ONGLYZA [Suspect]
     Indication: DIABETES MELLITUS
  6. GLYBURIDE [Suspect]
     Indication: DIABETES MELLITUS
  7. DILTIAZEM HCL [Concomitant]
     Indication: HYPERTENSION
  8. LISINOPRIL [Concomitant]
     Indication: HYPERTENSION

REACTIONS (1)
  - BLOOD GLUCOSE INCREASED [None]
